FAERS Safety Report 6105789-1 (Version None)
Quarter: 2009Q1

REPORT INFORMATION
  Report Type: 
  Country: None (occurrence: None)
  Receive Date: 20090306
  Receipt Date: 20090224
  Transmission Date: 20090719
  Serious: Yes (Hospitalization)
  Sender: FDA-Public Use
  Company Number: US-SANOFI-SYNTHELABO-D01200604298

PATIENT
  Sex: Female
  Weight: 108.4 kg

DRUGS (19)
  1. TYLENOL [Concomitant]
     Route: 048
  2. DEXAMETHASONE [Concomitant]
     Route: 042
     Dates: start: 20060913
  3. ANZEMET [Concomitant]
     Route: 042
     Dates: start: 20060913
  4. ZOFRAN [Concomitant]
     Route: 048
     Dates: start: 20060915
  5. FERRLECIT [Concomitant]
     Route: 042
     Dates: start: 20060913
  6. COMPAZINE [Concomitant]
     Route: 048
     Dates: start: 20060913
  7. ARANESP [Concomitant]
     Route: 058
     Dates: start: 20060913
  8. MYTUSSIN AC [Concomitant]
     Dates: start: 20060909
  9. HISTINEX HC [Concomitant]
  10. SENOKOT [Concomitant]
  11. OXYCONTIN SR [Concomitant]
     Dates: start: 20060917
  12. TESSALON [Concomitant]
     Dates: start: 20060917
  13. PROTONIX [Concomitant]
     Route: 042
     Dates: start: 20060915, end: 20060918
  14. IBUPROFEN [Concomitant]
     Route: 048
     Dates: start: 20060918
  15. LEUCOVORIN CALCIUM [Suspect]
     Route: 042
     Dates: start: 20060913, end: 20060913
  16. FLUOROURACIL [Suspect]
     Dosage: 400 MG/M?, IV BOLUS D1+D2 FOLLOWED BY 5-FU 2400 MG/M? OVER 46-HOUR CONTINUOUS INFUSION.
     Route: 042
     Dates: start: 20060913, end: 20060915
  17. SR57746 OR PLACEBO [Suspect]
     Indication: NEUROLOGICAL SYMPTOM
     Route: 048
     Dates: start: 20060913, end: 20060915
  18. AVASTIN [Suspect]
     Dates: start: 20060913, end: 20060913
  19. OXALIPLATIN [Suspect]
     Route: 042
     Dates: start: 20060913, end: 20060913

REACTIONS (1)
  - TUMOUR NECROSIS [None]
